FAERS Safety Report 20839121 (Version 1)
Quarter: 2022Q2

REPORT INFORMATION
  Report Type: Report from Study
  Country: US (occurrence: US)
  Receive Date: 20220517
  Receipt Date: 20220517
  Transmission Date: 20220720
  Serious: Yes (Hospitalization)
  Sender: FDA-Public Use
  Company Number: US-TEVA-2022-US-2036893

PATIENT
  Age: 2 Year
  Sex: Female
  Weight: 13.1 kg

DRUGS (7)
  1. VINCRISTINE [Suspect]
     Active Substance: VINCRISTINE
     Indication: Leukaemia
     Dosage: .84 MILLIGRAM DAILY; DAYS 43 AND 50
     Route: 042
     Dates: start: 20181114
  2. METHOTREXATE [Suspect]
     Active Substance: METHOTREXATE
     Indication: Leukaemia
     Dosage: 10 MILLIGRAM DAILY; 29 AND 36
     Route: 037
     Dates: start: 20181101
  3. CYCLOPHOSPHAMIDE [Suspect]
     Active Substance: CYCLOPHOSPHAMIDE
     Indication: Leukaemia
     Dosage: 560 MILLIGRAM DAILY;
     Route: 042
     Dates: start: 20181102
  4. THIOGUANINE [Suspect]
     Active Substance: THIOGUANINE
     Indication: Leukaemia
     Dosage: 34 MILLIGRAM DAILY; DAYS 29 TO 42
     Route: 048
     Dates: start: 20190424
  5. CYTARABINE [Suspect]
     Active Substance: CYTARABINE
     Indication: Leukaemia
     Dosage: DAYS 36 TO 39
     Route: 058
     Dates: start: 20181102
  6. PEGASPARGASE [Suspect]
     Active Substance: PEGASPARGASE
     Indication: Leukaemia
     Dosage: DAY 43
     Route: 042
     Dates: start: 20181114
  7. RUXOLITINIB [Suspect]
     Active Substance: RUXOLITINIB
     Indication: Leukaemia
     Dosage: 60 MILLIGRAM DAILY;
     Route: 048
     Dates: start: 20181101

REACTIONS (3)
  - Pyrexia [Recovered/Resolved]
  - Diarrhoea [Recovered/Resolved]
  - Gastroenteritis norovirus [Recovered/Resolved]

NARRATIVE: CASE EVENT DATE: 20190527
